FAERS Safety Report 18478041 (Version 1)
Quarter: 2020Q4

REPORT INFORMATION
  Report Type: Spontaneous
  Country: US (occurrence: US)
  Receive Date: 20201108
  Receipt Date: 20201108
  Transmission Date: 20210114
  Serious: Yes (Hospitalization)
  Sender: FDA-Public Use
  Company Number: US-ROCHE-2710016

PATIENT
  Sex: Female

DRUGS (1)
  1. ESBRIET [Suspect]
     Active Substance: PIRFENIDONE
     Indication: IDIOPATHIC PULMONARY FIBROSIS
     Dosage: THREE TIMES A DAY, ONGOING: NO
     Route: 048
     Dates: start: 20170523

REACTIONS (3)
  - Ulcer [Unknown]
  - Nausea [Unknown]
  - Vomiting [Unknown]
